FAERS Safety Report 24638775 (Version 1)
Quarter: 2024Q4

REPORT INFORMATION
  Report Type: Spontaneous
  Country: US (occurrence: US)
  Receive Date: 20241119
  Receipt Date: 20241119
  Transmission Date: 20250115
  Serious: No
  Sender: PFIZER
  Company Number: US-PFIZER INC-PV202400149534

PATIENT
  Age: 85 Year
  Sex: Male

DRUGS (6)
  1. VYNDAMAX [Suspect]
     Active Substance: TAFAMIDIS
     Indication: Heart failure with reduced ejection fraction
     Dosage: TAKE 1 CAPSULE  IN THE MORNING
     Route: 048
  2. VYNDAMAX [Suspect]
     Active Substance: TAFAMIDIS
     Indication: Acquired ATTR amyloidosis
  3. NEURONTIN [Concomitant]
     Active Substance: GABAPENTIN
     Dosage: TAKE 2 CAPSULES BY MOUTH EVERY EVENING
     Route: 048
  4. CRESTOR [Concomitant]
     Active Substance: ROSUVASTATIN CALCIUM
     Indication: Atrial fibrillation
     Dosage: 5 MG, 1X/DAY
  5. ALDACTONE [Concomitant]
     Active Substance: SPIRONOLACTONE
     Dosage: TAKE BY MOUTH IN THE MORNING
     Route: 048
  6. TORSEMIDE [Concomitant]
     Active Substance: TORSEMIDE
     Dosage: UNK, AS NEEDED

REACTIONS (6)
  - Blood chloride increased [Unknown]
  - Anion gap decreased [Unknown]
  - Blood urea increased [Unknown]
  - Blood glucose increased [Unknown]
  - Peripheral swelling [Unknown]
  - Weight fluctuation [Unknown]

NARRATIVE: CASE EVENT DATE: 20240202
